FAERS Safety Report 21607962 (Version 1)
Quarter: 2022Q4

REPORT INFORMATION
  Report Type: Spontaneous
  Country: CA (occurrence: None)
  Receive Date: 20221117
  Receipt Date: 20221117
  Transmission Date: 20230112
  Serious: Yes (Other)
  Sender: FDA-Public Use
  Company Number: CA-PFIZER INC-202201232580

PATIENT
  Age: 59 Year
  Sex: Male
  Weight: 85 kg

DRUGS (3)
  1. METHOTREXATE [Suspect]
     Active Substance: METHOTREXATE
     Indication: Product used for unknown indication
     Route: 065
  2. LEFLUNOMIDE [Concomitant]
     Active Substance: LEFLUNOMIDE
     Dosage: ONGOING
     Route: 065
  3. ABRILADA [Concomitant]
     Active Substance: ADALIMUMAB-AFZB
     Route: 065
     Dates: start: 20221104

REACTIONS (3)
  - Limb operation [Recovered/Resolved]
  - Therapeutic product effect incomplete [Unknown]
  - Joint swelling [Unknown]

NARRATIVE: CASE EVENT DATE: 20220101
